FAERS Safety Report 8558655 (Version 2)
Quarter: 2012Q4

REPORT INFORMATION
  Report Type: 
  Country: GB (occurrence: GB)
  Receive Date: 20120511
  Receipt Date: 20121025
  Transmission Date: 20130627
  Serious: Yes (Hospitalization, Other)
  Sender: FDA-Public Use
  Company Number: GB-JNJFOC-20120501905

PATIENT
  Sex: Female
  Weight: 90 kg

DRUGS (1)
  1. REMICADE [Suspect]
     Indication: CROHN^S DISEASE
     Route: 042

REACTIONS (4)
  - Hepatic infarction [Recovered/Resolved]
  - Splenic vein thrombosis [Recovered/Resolved]
  - Atrial fibrillation [Unknown]
  - Lower respiratory tract infection [Unknown]
